FAERS Safety Report 7450190-1 (Version None)
Quarter: 2011Q1

REPORT INFORMATION
  Report Type: 
  Country: None (occurrence: None)
  Receive Date: 20110302
  Receipt Date: 20101207
  Transmission Date: 20110831
  Serious: No
  Sender: FDA-Public Use
  Company Number: 023413

PATIENT
  Sex: Male
  Weight: 75 kg

DRUGS (4)
  1. CIMZIA [Suspect]
     Indication: CROHN'S DISEASE
     Dosage: (2 SHOTS SUBCUTANEOUS)
     Route: 058
     Dates: start: 20100301
  2. IMURAN [Concomitant]
  3. PREDNISONE [Concomitant]
  4. PENTASA [Concomitant]

REACTIONS (1)
  - CROHN'S DISEASE [None]
